FAERS Safety Report 8709253 (Version 2)
Quarter: 2012Q4

REPORT INFORMATION
  Report Type: 
  Country: US (occurrence: US)
  Receive Date: 20120806
  Receipt Date: 20120926
  Transmission Date: 20130627
  Serious: Yes (Other)
  Sender: FDA-Public Use
  Company Number: US-ACTELION-A-NJ2012-68376

PATIENT
  Age: 79 Year
  Sex: Male

DRUGS (2)
  1. VENTAVIS [Suspect]
     Indication: PULMONARY ARTERIAL HYPERTENSION
     Dosage: 4-5 treatments daily
     Route: 055
  2. ASPIRIN [Concomitant]

REACTIONS (6)
  - Hallucination [Unknown]
  - Disorientation [Unknown]
  - Vision blurred [Recovered/Resolved]
  - Pain in extremity [Unknown]
  - Sleep disorder [Unknown]
  - Cough [Unknown]
